FAERS Safety Report 12189952 (Version 1)
Quarter: 2016Q1

REPORT INFORMATION
  Report Type: Spontaneous
  Country: US (occurrence: None)
  Receive Date: 20160317
  Receipt Date: 20160317
  Transmission Date: 20160526
  Serious: Yes (Other)
  Sender: FDA-Public Use
  Company Number: None

PATIENT
  Age: 54 Year

DRUGS (1)
  1. GABLOFEN [Suspect]
     Active Substance: BACLOFEN

REACTIONS (2)
  - Product sterility lacking [None]
  - Product label issue [None]

NARRATIVE: CASE EVENT DATE: 20151216
